FAERS Safety Report 10251618 (Version 1)
Quarter: 2014Q2

REPORT INFORMATION
  Report Type: Spontaneous
  Country: US (occurrence: US)
  Receive Date: 20140623
  Receipt Date: 20140623
  Transmission Date: 20141212
  Serious: Yes (Other)
  Sender: FDA-Public Use
  Company Number: US-009507513-1406USA009393

PATIENT
  Age: 0 Day
  Sex: Male

DRUGS (4)
  1. ISENTRESS [Suspect]
     Dosage: TOTAL DAILY DOSE 800 (UNIT UNSPECIFIED), ONGOING AT DELIVERY
     Route: 064
  2. DARUNAVIR [Suspect]
     Dosage: TOTAL DAILY DOSE 1200 (UNIT UNSPECIFIED), ONGOING AT DELIVERY
     Route: 064
  3. ETRAVIRINE [Suspect]
     Dosage: TOTAL DAILY DOSE 400 (UNIT UNSPECIFIED), ONGOING AT DELIVERY
     Route: 064
  4. RITONAVIR [Suspect]
     Dosage: TOTAL DAILY DOSE 200 MG (UNIT UNSPECIFIED), ONGOING AT DELIVERY
     Route: 064

REACTIONS (2)
  - Low birth weight baby [Unknown]
  - Foetal exposure during pregnancy [Recovered/Resolved]
